FAERS Safety Report 23530812 (Version 1)
Quarter: 2024Q1

REPORT INFORMATION
  Report Type: Spontaneous
  Country: GB (occurrence: GB)
  Receive Date: 20240216
  Receipt Date: 20240216
  Transmission Date: 20240410
  Serious: Yes (Hospitalization, Other)
  Sender: FDA-Public Use
  Company Number: XI-ACS-20240010

PATIENT
  Age: 8 Decade
  Sex: Male

DRUGS (12)
  1. ERTAPENEM [Suspect]
     Active Substance: ERTAPENEM
     Indication: Antibiotic prophylaxis
     Dosage: 1 GRAM, DAILY
     Route: 042
     Dates: start: 20230107, end: 20230124
  2. ERTAPENEM [Suspect]
     Active Substance: ERTAPENEM
     Indication: Pneumonia
  3. CARBIMAZOLE [Concomitant]
     Active Substance: CARBIMAZOLE
     Indication: Hyperthyroidism
     Dosage: 10 MILLIGRAM, ONCE A DAY
     Route: 048
     Dates: start: 20230105
  4. FLUDROCORTISONE [Concomitant]
     Active Substance: FLUDROCORTISONE
     Indication: Product used for unknown indication
     Dosage: UNK
     Route: 065
  5. FELODIPINE [Concomitant]
     Active Substance: FELODIPINE
     Indication: Product used for unknown indication
     Dosage: UNK
     Route: 065
  6. TEICOPLANIN [Concomitant]
     Active Substance: TEICOPLANIN
     Indication: Pneumonia
     Dosage: 1 GRAM, TWO TIMES A DAY (1 G WITH LOADING DOSE EVERY 12 HOURS FOR 3 DOSES )
     Route: 042
     Dates: start: 20221225, end: 20221226
  7. TEICOPLANIN [Concomitant]
     Active Substance: TEICOPLANIN
     Dosage: 1 GRAM, ONCE A DAY
     Route: 042
     Dates: start: 20221225, end: 20221228
  8. MEROPENEM [Concomitant]
     Active Substance: MEROPENEM
     Indication: Pneumonia
     Dosage: 3 GRAM, ONCE A DAY
     Route: 042
     Dates: start: 20221228, end: 20230107
  9. CLARITHROMYCIN [Concomitant]
     Active Substance: CLARITHROMYCIN
     Indication: Pneumonia
     Dosage: 1000 MILLIGRAM, ONCE A DAY (500 MILLIGRAM, BID )
     Route: 048
     Dates: start: 20221225, end: 20221228
  10. MIDODRINE [Concomitant]
     Active Substance: MIDODRINE
     Indication: Orthostatic hypotension
     Dosage: 2.5 MILLIGRAM, 3 TIMES A DAY
     Route: 065
     Dates: start: 20230116, end: 20230121
  11. HALOPERIDOL [Concomitant]
     Active Substance: HALOPERIDOL
     Indication: Delirium
     Dosage: 0.5 MILLIGRAM, 3 TIMES A DAY
     Route: 065
     Dates: start: 20230119, end: 20230124
  12. LORAZEPAM [Concomitant]
     Active Substance: LORAZEPAM
     Indication: Delirium
     Dosage: 0.5 MILLIGRAM, ONCE A DAY
     Route: 065
     Dates: start: 20230119, end: 20230124

REACTIONS (1)
  - Toxic encephalopathy [Recovered/Resolved]

NARRATIVE: CASE EVENT DATE: 20230109
